FAERS Safety Report 10524052 (Version 1)
Quarter: 2014Q4

REPORT INFORMATION
  Report Type: Spontaneous
  Country: US (occurrence: US)
  Receive Date: 20141017
  Receipt Date: 20141017
  Transmission Date: 20150528
  Serious: No
  Sender: FDA-Public Use
  Company Number: US-BAYER-2014-153460

PATIENT
  Age: 88 Year
  Sex: Male
  Weight: 79.37 kg

DRUGS (5)
  1. VITAMIIN C [Concomitant]
     Active Substance: ASCORBIC ACID
  2. COD LIVER OIL [Concomitant]
     Active Substance: COD LIVER OIL
  3. GARLIC. [Concomitant]
     Active Substance: GARLIC
  4. ALEVE [Suspect]
     Active Substance: NAPROXEN SODIUM
     Indication: ARTHRITIS
     Dosage: 1 DF, PRN
     Route: 048
  5. ASPIRIN. [Concomitant]
     Active Substance: ASPIRIN
     Dosage: 81 MG

REACTIONS (1)
  - Drug ineffective [Unknown]
